FAERS Safety Report 14867893 (Version 1)
Quarter: 2018Q2

REPORT INFORMATION
  Report Type: Spontaneous
  Country: US (occurrence: US)
  Receive Date: 20180509
  Receipt Date: 20180509
  Transmission Date: 20180711
  Serious: No
  Sender: FDA-Public Use
  Company Number: US-009507513-1804USA011443

PATIENT
  Age: 58 Year
  Sex: Female

DRUGS (7)
  1. CLARINEX [Suspect]
     Active Substance: DESLORATADINE
     Indication: RHINORRHOEA
  2. SINGULAIR [Concomitant]
     Active Substance: MONTELUKAST SODIUM
     Route: 048
  3. CLARINEX [Suspect]
     Active Substance: DESLORATADINE
     Indication: SNEEZING
  4. ADVAIR HFA [Concomitant]
     Active Substance: FLUTICASONE PROPIONATE\SALMETEROL XINAFOATE
     Dosage: EVERY OTHER DAY
  5. CLARINEX [Suspect]
     Active Substance: DESLORATADINE
     Indication: RHINITIS
     Dosage: ONE 5 MG TABLET/DAILY
     Route: 048
     Dates: start: 2002
  6. COMBIVENT [Concomitant]
     Active Substance: ALBUTEROL SULFATE\IPRATROPIUM BROMIDE
  7. ADVAIR HFA [Concomitant]
     Active Substance: FLUTICASONE PROPIONATE\SALMETEROL XINAFOATE
     Dosage: DAILY

REACTIONS (6)
  - Bronchitis [Recovered/Resolved]
  - Vertigo [Unknown]
  - Product availability issue [Unknown]
  - Drug dose omission [Unknown]
  - Asthma [Unknown]
  - Headache [Unknown]

NARRATIVE: CASE EVENT DATE: 201804
